FAERS Safety Report 7129115-4 (Version None)
Quarter: 2010Q4

REPORT INFORMATION
  Report Type: 
  Country: None (occurrence: None)
  Receive Date: 20101104
  Receipt Date: 20101028
  Transmission Date: 20110411
  Serious: Yes (Hospitalization, Other)
  Sender: FDA-Public Use
  Company Number: 2010SP012073

PATIENT
  Age: 38 Year
  Sex: Female
  Weight: 80.7403 kg

DRUGS (1)
  1. NUVARING [Suspect]
     Indication: CONTRACEPTION
     Dates: start: 20070101, end: 20080201

REACTIONS (6)
  - ALANINE AMINOTRANSFERASE INCREASED [None]
  - ASPARTATE AMINOTRANSFERASE INCREASED [None]
  - CEREBRAL INFARCTION [None]
  - DIARRHOEA [None]
  - PULMONARY EMBOLISM [None]
  - SINUS TACHYCARDIA [None]
